FAERS Safety Report 23809695 (Version 1)
Quarter: 2024Q2

REPORT INFORMATION
  Report Type: Spontaneous
  Country: US (occurrence: US)
  Receive Date: 20240502
  Receipt Date: 20240502
  Transmission Date: 20240716
  Serious: No
  Sender: FDA-Public Use
  Company Number: US-BAXTER-2024BAX017417

PATIENT
  Age: 69 Year
  Sex: Female

DRUGS (3)
  1. CIPROFLOXACIN [Suspect]
     Active Substance: CIPROFLOXACIN
     Indication: Pneumonia
     Dosage: AT AN UNSPECIFIED DOSE AND FREQUENCY
     Route: 065
     Dates: start: 20240321
  2. KRAZATI [Suspect]
     Active Substance: ADAGRASIB
     Indication: Lung neoplasm malignant
     Dosage: 400 (MG) MILLIGRAM, TWICE DAILY
     Route: 048
     Dates: start: 20240313, end: 20240321
  3. KRAZATI [Suspect]
     Active Substance: ADAGRASIB
     Dosage: 400 (MG) MILLIGRAM, TWICE DAILY
     Route: 048
     Dates: start: 20240327

REACTIONS (4)
  - Fatigue [Not Recovered/Not Resolved]
  - Asthenia [Not Recovered/Not Resolved]
  - Diarrhoea [Not Recovered/Not Resolved]
  - Nausea [Not Recovered/Not Resolved]

NARRATIVE: CASE EVENT DATE: 20240321
